FAERS Safety Report 17080386 (Version 1)
Quarter: 2019Q4

REPORT INFORMATION
  Report Type: Spontaneous
  Country: IT (occurrence: IT)
  Receive Date: 20191127
  Receipt Date: 20191127
  Transmission Date: 20200122
  Serious: Yes (Other)
  Sender: FDA-Public Use
  Company Number: IT-JNJFOC-20191125879

PATIENT
  Age: 28 Year
  Sex: Female

DRUGS (3)
  1. IBUPROFEN LYSINATE [Suspect]
     Active Substance: IBUPROFEN LYSINE
     Indication: TOOTHACHE
     Route: 048
     Dates: start: 20191106, end: 20191106
  2. PARACETAMOL [Suspect]
     Active Substance: ACETAMINOPHEN
     Indication: TOOTHACHE
     Route: 048
     Dates: start: 20191106, end: 20191106
  3. TAPENTADOL HYDROCHLORIDE [Suspect]
     Active Substance: TAPENTADOL HYDROCHLORIDE
     Indication: TOOTHACHE
     Route: 048
     Dates: start: 20191106, end: 20191106

REACTIONS (3)
  - Nausea [Recovering/Resolving]
  - Vomiting [Recovering/Resolving]
  - Drug abuse [Recovering/Resolving]

NARRATIVE: CASE EVENT DATE: 20191107
